FAERS Safety Report 7134513-9 (Version None)
Quarter: 2010Q4

REPORT INFORMATION
  Report Type: 
  Country: None (occurrence: None)
  Receive Date: 20101203
  Receipt Date: 20101123
  Transmission Date: 20110411
  Serious: Yes (Death)
  Sender: FDA-Public Use
  Company Number: US-ACTELION-A-US2010-41144

PATIENT

DRUGS (3)
  1. BOSENTAN TABLET UNKNOWN US MG [Suspect]
     Indication: PULMONARY ARTERIAL HYPERTENSION
     Dosage: 125 MG, BID
     Route: 048
     Dates: end: 20100917
  2. BOSENTAN TABLET UNKNOWN US MG [Suspect]
     Dosage: 65 MG, BID
     Route: 048
     Dates: start: 20091207
  3. REVATIO [Concomitant]

REACTIONS (1)
  - DEATH [None]
